FAERS Safety Report 18544219 (Version 1)
Quarter: 2020Q4

REPORT INFORMATION
  Report Type: Spontaneous
  Country: SA (occurrence: SA)
  Receive Date: 20201125
  Receipt Date: 20201125
  Transmission Date: 20210114
  Serious: Yes (Life-Threatening, Other)
  Sender: FDA-Public Use
  Company Number: SA-ALVOGEN-2020-ALVOGEN-115286

PATIENT
  Age: 39 Year
  Sex: Female
  Weight: 56 kg

DRUGS (1)
  1. FENTANYL. [Suspect]
     Active Substance: FENTANYL
     Indication: ABDOMINAL PAIN UPPER
     Dosage: FREQUENT
     Route: 060

REACTIONS (5)
  - Pruritus [Unknown]
  - Nausea [Unknown]
  - Somnolence [Unknown]
  - Constipation [Unknown]
  - Coma [Unknown]
